FAERS Safety Report 14169519 (Version 1)
Quarter: 2017Q4

REPORT INFORMATION
  Report Type: Spontaneous
  Country: US (occurrence: US)
  Receive Date: 20171107
  Receipt Date: 20171107
  Transmission Date: 20180321
  Serious: Yes (Other)
  Sender: FDA-Public Use
  Company Number: None

PATIENT
  Sex: Male
  Weight: 112.5 kg

DRUGS (22)
  1. CELEBREX [Concomitant]
     Active Substance: CELECOXIB
  2. PLAVICS [Concomitant]
  3. LEVEMIR [Concomitant]
     Active Substance: INSULIN DETEMIR
  4. EYLEA [Suspect]
     Active Substance: AFLIBERCEPT
     Indication: RETINAL VEIN OCCLUSION
     Dates: start: 20170906, end: 20171106
  5. GLUCOSE TEST DAILY [Concomitant]
  6. LIPITOR [Concomitant]
     Active Substance: ATORVASTATIN CALCIUM
  7. FINASTERIDE. [Concomitant]
     Active Substance: FINASTERIDE
  8. TANZEUM [Concomitant]
     Active Substance: ALBIGLUTIDE
  9. GLYBURIDE. [Concomitant]
     Active Substance: GLYBURIDE
  10. METOPROLOL. [Concomitant]
     Active Substance: METOPROLOL
  11. TOPROL XL [Concomitant]
     Active Substance: METOPROLOL SUCCINATE
  12. RAMIPRIL. [Concomitant]
     Active Substance: RAMIPRIL
  13. NIFEDIPINE. [Concomitant]
     Active Substance: NIFEDIPINE
  14. COMBIGAN [Concomitant]
     Active Substance: BRIMONIDINE TARTRATE\TIMOLOL MALEATE
  15. ATORVASTATIN [Concomitant]
     Active Substance: ATORVASTATIN
  16. ASPIRIN. [Concomitant]
     Active Substance: ASPIRIN
  17. CELECOXIB. [Concomitant]
     Active Substance: CELECOXIB
  18. ALTACE [Concomitant]
     Active Substance: RAMIPRIL
  19. ISOSORBIDE MONITRATE [Concomitant]
  20. ADALAT [Concomitant]
     Active Substance: NIFEDIPINE
  21. CLOPIDOGREL [Concomitant]
     Active Substance: CLOPIDOGREL BISULFATE
  22. PROSCAR [Concomitant]
     Active Substance: FINASTERIDE

REACTIONS (1)
  - Retinal artery occlusion [None]

NARRATIVE: CASE EVENT DATE: 20170920
